FAERS Safety Report 12502993 (Version 1)
Quarter: 2016Q2

REPORT INFORMATION
  Report Type: Spontaneous
  Country: AE (occurrence: AE)
  Receive Date: 20160628
  Receipt Date: 20160628
  Transmission Date: 20160815
  Serious: Yes (Hospitalization)
  Sender: FDA-Public Use
  Company Number: AE-ALEMBIC PHARMACUETICALS LIMITED-2016SCAL000515

PATIENT

DRUGS (5)
  1. OLANZAPINE. [Concomitant]
     Active Substance: OLANZAPINE
     Indication: PROPHYLAXIS
     Dosage: 10 MG, UNK
     Route: 048
  2. CLONAZEPAM. [Concomitant]
     Active Substance: CLONAZEPAM
     Indication: PRODUCT USED FOR UNKNOWN INDICATION
     Dosage: 2 MG, UNK
     Route: 048
  3. CEFADROXIL. [Concomitant]
     Active Substance: CEFADROXIL
     Indication: UPPER RESPIRATORY TRACT INFECTION
     Dosage: 500 MG, BID
  4. LITHIUM CARBONATE. [Suspect]
     Active Substance: LITHIUM CARBONATE
     Indication: PROPHYLAXIS
     Dosage: 900 MG, UNK
     Route: 048
  5. LITHIUM CARBONATE. [Suspect]
     Active Substance: LITHIUM CARBONATE
     Indication: BIPOLAR DISORDER
     Dosage: RESTARTED WITH 900 MG IN TWO DIVIDED DOSES ALONG
     Route: 048

REACTIONS (2)
  - Toxicity to various agents [Recovering/Resolving]
  - Nervous system disorder [Not Recovered/Not Resolved]
